FAERS Safety Report 13597621 (Version 2)
Quarter: 2017Q3

REPORT INFORMATION
  Report Type: Spontaneous
  Country: GB (occurrence: GB)
  Receive Date: 20170531
  Receipt Date: 20170920
  Transmission Date: 20171127
  Serious: Yes (Other)
  Sender: FDA-Public Use
  Company Number: GB-ROCHE-1941775

PATIENT
  Age: 23 Year
  Sex: Female
  Weight: 109 kg

DRUGS (5)
  1. XOLAIR [Suspect]
     Active Substance: OMALIZUMAB
     Dosage: DURING 1ST TRIMESTER
     Route: 058
     Dates: start: 20160715
  2. XOLAIR [Suspect]
     Active Substance: OMALIZUMAB
     Indication: ASTHMA
     Dosage: DURING 1ST TRIMESTER
     Route: 058
     Dates: start: 20150226
  3. XOLAIR [Suspect]
     Active Substance: OMALIZUMAB
     Dosage: DURING 1ST TRIMESTER
     Route: 058
     Dates: start: 20160812
  4. XOLAIR [Suspect]
     Active Substance: OMALIZUMAB
     Dosage: DURING 1ST TRIMESTER
     Route: 058
     Dates: start: 20160909
  5. XOLAIR [Suspect]
     Active Substance: OMALIZUMAB
     Dosage: DURING 1ST TRIMESTER
     Route: 058
     Dates: start: 20161007

REACTIONS (2)
  - Maternal exposure during pregnancy [Unknown]
  - Streptococcal infection [Recovered/Resolved]

NARRATIVE: CASE EVENT DATE: 201702
